FAERS Safety Report 23408950 (Version 1)
Quarter: 2024Q1

REPORT INFORMATION
  Report Type: Spontaneous
  Country: US (occurrence: None)
  Receive Date: 20240115
  Receipt Date: 20240115
  Transmission Date: 20240409
  Serious: No
  Sender: FDA-Public Use
  Company Number: None

PATIENT

DRUGS (2)
  1. LORAZEPAM [Suspect]
     Active Substance: LORAZEPAM
     Route: 048
  2. LORAZEPAM [Suspect]
     Active Substance: LORAZEPAM
     Route: 048

REACTIONS (3)
  - Product dispensing error [None]
  - Accidental overdose [None]
  - Product packaging quantity issue [None]
